FAERS Safety Report 19595044 (Version 1)
Quarter: 2021Q3

REPORT INFORMATION
  Report Type: Spontaneous
  Country: US (occurrence: US)
  Receive Date: 20210722
  Receipt Date: 20210722
  Transmission Date: 20211014
  Serious: No
  Sender: FDA-Public Use
  Company Number: US-ADVANZ PHARMA-202107005115

PATIENT

DRUGS (2)
  1. ALITRETINOIN [Suspect]
     Active Substance: ALITRETINOIN
     Indication: KAPOSI^S SARCOMA
     Dosage: UNK, BID (BID ALTERNATING WITH TID)
     Dates: start: 202106
  2. ALITRETINOIN [Suspect]
     Active Substance: ALITRETINOIN
     Dosage: UNK, TID (BID ALTERNATING WITH TID)
     Dates: start: 202106

REACTIONS (2)
  - Erythema [Not Recovered/Not Resolved]
  - Pruritus [Not Recovered/Not Resolved]

NARRATIVE: CASE EVENT DATE: 202106
